FAERS Safety Report 4508025-2 (Version None)
Quarter: 2004Q4

REPORT INFORMATION
  Report Type: 
  Country: None (occurrence: None)
  Receive Date: 20041123
  Receipt Date: 20020726
  Transmission Date: 20050328
  Serious: No
  Sender: FDA-Public Use
  Company Number: US-GLAXOSMITHKLINE-A0375995A

PATIENT
  Age: 61 Year
  Sex: Male

DRUGS (5)
  1. WELLBUTRIN [Suspect]
     Indication: DEPRESSION
     Dosage: 150MG PER DAY
     Route: 048
  2. WELLBUTRIN [Suspect]
     Dosage: 150MG PER DAY
     Route: 048
  3. DEPAKOTE [Concomitant]
  4. REMERON [Concomitant]
  5. DEPAKOTE [Concomitant]

REACTIONS (2)
  - AGITATION [None]
  - ANXIETY [None]
